FAERS Safety Report 9431757 (Version 1)
Quarter: 2013Q3

REPORT INFORMATION
  Report Type: Spontaneous
  Country: GB (occurrence: GB)
  Receive Date: 20130731
  Receipt Date: 20130731
  Transmission Date: 20140515
  Serious: Yes (Other)
  Sender: FDA-Public Use
  Company Number: GB-009507513-1307GBR014661

PATIENT
  Age: 18 Year
  Sex: Female

DRUGS (2)
  1. MIRTAZAPINE [Suspect]
     Indication: DEPRESSION
     Dosage: 15 MG, UNK
     Route: 048
     Dates: start: 20130625, end: 20130702
  2. LAMOTRIGINE [Concomitant]
     Dosage: 25 MG, QD

REACTIONS (3)
  - Elevated mood [Recovered/Resolved]
  - Hypomania [Recovered/Resolved]
  - Agitation [Unknown]
